FAERS Safety Report 13825482 (Version 1)
Quarter: 2017Q3

REPORT INFORMATION
  Report Type: Spontaneous
  Country: US (occurrence: US)
  Receive Date: 20170802
  Receipt Date: 20170802
  Transmission Date: 20171127
  Serious: No
  Sender: FDA-Public Use
  Company Number: US-009507513-1707USA005513

PATIENT
  Age: 29 Year
  Sex: Female
  Weight: 52.61 kg

DRUGS (1)
  1. NEXPLANON [Suspect]
     Active Substance: ETONOGESTREL
     Indication: CONTRACEPTION
     Dosage: UNK, EVERY THREE YEARS
     Route: 059

REACTIONS (3)
  - Dizziness [Unknown]
  - Nausea [Unknown]
  - Implant site pain [Unknown]

NARRATIVE: CASE EVENT DATE: 20170710
